FAERS Safety Report 9850606 (Version 2)
Quarter: 2014Q1

REPORT INFORMATION
  Report Type: Spontaneous
  Country: US (occurrence: US)
  Receive Date: 20140128
  Receipt Date: 20140320
  Transmission Date: 20141002
  Serious: Yes (Death, Life-Threatening, Disabling, Other)
  Sender: FDA-Public Use
  Company Number: US-MERCK-1401USA012742

PATIENT
  Sex: Female

DRUGS (1)
  1. JANUVIA [Suspect]
     Indication: TYPE 2 DIABETES MELLITUS
     Dosage: 100 MG, QD
     Route: 048
     Dates: start: 201001

REACTIONS (21)
  - Pancreatic carcinoma [Fatal]
  - Metastases to lung [Unknown]
  - Multiple sclerosis [Unknown]
  - Cerebrovascular accident [Unknown]
  - Onycholysis [Unknown]
  - Treatment noncompliance [Unknown]
  - Anxiety [Unknown]
  - Urinary tract infection [Not Recovered/Not Resolved]
  - Osteoarthritis [Unknown]
  - Aortic arteriosclerosis [Unknown]
  - Arteriosclerosis coronary artery [Unknown]
  - Dementia [Unknown]
  - Umbilical hernia [Unknown]
  - Spinal osteoarthritis [Unknown]
  - Diverticulitis [Unknown]
  - Renal cyst [Unknown]
  - Insulin-requiring type 2 diabetes mellitus [Unknown]
  - Nephrolithiasis [Unknown]
  - Hypertension [Unknown]
  - Oedema peripheral [Unknown]
  - Abdominal pain [Unknown]
